FAERS Safety Report 25252176 (Version 1)
Quarter: 2025Q2

REPORT INFORMATION
  Report Type: Spontaneous
  Country: FR (occurrence: FR)
  Receive Date: 20250429
  Receipt Date: 20250429
  Transmission Date: 20250716
  Serious: Yes (Life-Threatening)
  Sender: VERITY PHARMACEUTICALS INC.
  Company Number: FR-VER-202500016

PATIENT
  Age: 72 Year
  Sex: Male
  Weight: 73 kg

DRUGS (8)
  1. TRIPTORELIN PAMOATE [Suspect]
     Active Substance: TRIPTORELIN PAMOATE
     Indication: Prostate cancer
     Dosage: POWDER FOR PROLONGED-RELEASE SUSPENSION FOR INJECT; 1 DOSAGE FORM, IN 3 MONTH
     Route: 048
     Dates: start: 2022, end: 202410
  2. MORPHINE SULFATE [Concomitant]
     Active Substance: MORPHINE SULFATE
     Indication: Product used for unknown indication
     Route: 065
  3. TAMSULOSIN [Concomitant]
     Active Substance: TAMSULOSIN
     Indication: Product used for unknown indication
     Route: 065
  4. AMLODIPINE [Concomitant]
     Active Substance: AMLODIPINE BESYLATE
     Indication: Product used for unknown indication
     Route: 065
  5. PERINDOPRIL [Concomitant]
     Active Substance: PERINDOPRIL
     Indication: Product used for unknown indication
     Route: 065
  6. PREDNISOLONE SODIUM METAZOATE [Suspect]
     Active Substance: PREDNISOLONE SODIUM METAZOATE
     Indication: Prophylaxis
     Dosage: 2 DOSAGE FORM, IN 1 DAY
     Route: 048
     Dates: end: 20241009
  7. LYNPARZA [Suspect]
     Active Substance: OLAPARIB
     Indication: Prostate cancer
     Dosage: 4 DOSAGE FORM, IN 1 DAY
     Route: 048
     Dates: start: 20240923, end: 20241009
  8. ZYTIGA [Suspect]
     Active Substance: ABIRATERONE ACETATE
     Indication: Prostate cancer
     Dosage: 2 DOSAGE FORM, IN 1 DAY
     Route: 048
     Dates: start: 2022, end: 20241009

REACTIONS (2)
  - Off label use [Unknown]
  - Heart failure with reduced ejection fraction [Recovered/Resolved with Sequelae]

NARRATIVE: CASE EVENT DATE: 20220101
